FAERS Safety Report 16075747 (Version 1)
Quarter: 2019Q1

REPORT INFORMATION
  Report Type: Spontaneous
  Country: ZA (occurrence: ZA)
  Receive Date: 20190315
  Receipt Date: 20190315
  Transmission Date: 20190418
  Serious: Yes (Death, Other)
  Sender: FDA-Public Use
  Company Number: ZA-GLAXOSMITHKLINE-ZA2019045893

PATIENT
  Age: 52 Year
  Sex: Female

DRUGS (2)
  1. CATAFLAM [Suspect]
     Active Substance: DICLOFENAC POTASSIUM
     Indication: PAIN
  2. CATAFLAM [Suspect]
     Active Substance: DICLOFENAC POTASSIUM
     Indication: INFLAMMATION
     Dosage: 50 MG, UNK
     Route: 048

REACTIONS (1)
  - Myocardial infarction [Fatal]

NARRATIVE: CASE EVENT DATE: 201812
